FAERS Safety Report 25984332 (Version 2)
Quarter: 2025Q4

REPORT INFORMATION
  Report Type: Spontaneous
  Country: US (occurrence: US)
  Receive Date: 20251031
  Receipt Date: 20251217
  Transmission Date: 20260118
  Serious: No
  Sender: SANDOZ
  Company Number: US-SANDOZ-SDZ2025US080840

PATIENT
  Sex: Female

DRUGS (1)
  1. CLINDAMYCIN [Suspect]
     Active Substance: CLINDAMYCIN
     Indication: Rash
     Dosage: FOUGERA 1% - TOPICAL SOLUTION (1% 30ML SOL US)
     Route: 065

REACTIONS (3)
  - Device difficult to use [Unknown]
  - Circumstance or information capable of leading to medication error [Unknown]
  - Device mechanical issue [Unknown]

NARRATIVE: CASE EVENT DATE: 20251029
